FAERS Safety Report 15451842 (Version 1)
Quarter: 2018Q4

REPORT INFORMATION
  Report Type: Spontaneous
  Country: ZA (occurrence: ZA)
  Receive Date: 20181001
  Receipt Date: 20181001
  Transmission Date: 20190204
  Serious: Yes (Hospitalization)
  Sender: FDA-Public Use
  Company Number: ZA-ASTRAZENECA-2018SF25216

PATIENT
  Age: 29673 Day
  Sex: Male

DRUGS (5)
  1. ALTOSEC [Suspect]
     Active Substance: OMEPRAZOLE
     Route: 048
  2. ATACAND [Suspect]
     Active Substance: CANDESARTAN CILEXETIL
     Route: 048
  3. ASPAVOR [Suspect]
     Active Substance: ATORVASTATIN
     Route: 065
  4. CALCIFEROL [ERGOCALCIFEROL] [Suspect]
     Active Substance: ERGOCALCIFEROL
     Route: 065
  5. ARTHREXIN [Suspect]
     Active Substance: INDOMETHACIN
     Route: 065

REACTIONS (1)
  - Cystitis [Unknown]

NARRATIVE: CASE EVENT DATE: 20180807
